FAERS Safety Report 8529934 (Version 4)
Quarter: 2012Q4

REPORT INFORMATION
  Report Type: 
  Country: FR (occurrence: FR)
  Receive Date: 20120425
  Receipt Date: 20120919
  Transmission Date: 20130627
  Serious: Yes (Other)
  Sender: FDA-Public Use
  Company Number: FR-ALLERGAN-1205550US

PATIENT
  Age: 84 Year
  Sex: Male
  Weight: 78 kg

DRUGS (4)
  1. BIMATOPROST [Suspect]
     Indication: GLAUCOMA
     Dosage: 2 Gtt, qpm
     Route: 047
     Dates: start: 2011, end: 201205
  2. PLAVIX [Suspect]
     Indication: CENTRAL RETINAL VEIN OCCLUSION
     Dosage: 1 DF, qd
     Dates: start: 2010
  3. ALLOPURINOL [Suspect]
     Indication: GOUT
     Dosage: 1 DF, qd
     Dates: start: 2010
  4. KARDEGIC [Suspect]
     Indication: CENTRAL RETINAL VEIN OCCLUSION
     Dosage: 1 DF, qd
     Dates: start: 2010

REACTIONS (3)
  - Cyanosis [Recovering/Resolving]
  - Erythrocyanosis [Recovering/Resolving]
  - Neuropathy peripheral [Recovering/Resolving]
